FAERS Safety Report 4828740-0 (Version None)
Quarter: 2005Q4

REPORT INFORMATION
  Report Type: 
  Country: None (occurrence: None)
  Receive Date: 20051014
  Receipt Date: 20050826
  Transmission Date: 20060501
  Serious: No
  Sender: FDA-Public Use
  Company Number: 2005SP002544

PATIENT
  Age: 32 Year
  Sex: Female
  Weight: 64.4108 kg

DRUGS (9)
  1. LUNESTA [Suspect]
     Indication: INSOMNIA
     Dosage: 2 MG;1X;ORAL
     Route: 048
     Dates: start: 20050823, end: 20050823
  2. LEXAPRO [Concomitant]
  3. ULTRAM [Concomitant]
  4. FLEXERIL [Concomitant]
  5. ASTELIN [Concomitant]
  6. MULTI-VITAMIN [Concomitant]
  7. YASMIN [Concomitant]
  8. ACIDOPHILLUS [Concomitant]
  9. BACLOFEN [Concomitant]

REACTIONS (3)
  - CONFUSIONAL STATE [None]
  - CRYING [None]
  - SUICIDAL IDEATION [None]
